FAERS Safety Report 7360992-8 (Version None)
Quarter: 2011Q1

REPORT INFORMATION
  Report Type: 
  Country: None (occurrence: None)
  Receive Date: 20110315
  Receipt Date: 20110315
  Transmission Date: 20110831
  Serious: Yes (Other)
  Sender: FDA-Public Use
  Company Number: None

PATIENT
  Age: 17 Year
  Sex: Female
  Weight: 68.9467 kg

DRUGS (1)
  1. ABILIFY [Suspect]
     Dosage: 10 MG X 1 DAILY
     Dates: start: 20100501, end: 20101101

REACTIONS (5)
  - MUSCULOSKELETAL STIFFNESS [None]
  - ORAL PAIN [None]
  - TREMOR [None]
  - DYSKINESIA [None]
  - EYE DISORDER [None]
